FAERS Safety Report 25446762 (Version 1)
Quarter: 2025Q2

REPORT INFORMATION
  Report Type: Spontaneous
  Country: US (occurrence: US)
  Receive Date: 20250617
  Receipt Date: 20250617
  Transmission Date: 20250717
  Serious: No
  Sender: UCB
  Company Number: US-UCBSA-2025029133

PATIENT
  Sex: Male

DRUGS (1)
  1. BIMZELX [Suspect]
     Active Substance: BIMEKIZUMAB-BKZX
     Indication: Product used for unknown indication
     Dosage: 320 MILLIGRAM, EV 4 WEEKS
     Route: 058

REACTIONS (3)
  - Blister [Unknown]
  - Pustule [Unknown]
  - Pruritus [Unknown]
